FAERS Safety Report 7701174 (Version 3)
Quarter: 2012Q4

REPORT INFORMATION
  Report Type: 
  Country: JP (occurrence: JP)
  Receive Date: 20101209
  Receipt Date: 20121130
  Transmission Date: 20130627
  Serious: No
  Sender: FDA-Public Use
  Company Number: JP-JNJFOC-20101203221

PATIENT
  Age: 26 Year
  Sex: Male

DRUGS (4)
  1. TOPIRAMATE [Suspect]
     Indication: PARTIAL SEIZURES
     Route: 048
     Dates: start: 20101124
  2. TOPIRAMATE [Suspect]
     Indication: PARTIAL SEIZURES
     Route: 048
     Dates: end: 20101123
  3. TOPIRAMATE [Suspect]
     Indication: EPILEPSY
     Route: 048
     Dates: end: 20101123
  4. TOPIRAMATE [Suspect]
     Indication: EPILEPSY
     Route: 048
     Dates: start: 20101124

REACTIONS (1)
  - Hyperammonaemia [Unknown]
